FAERS Safety Report 8623904-2 (Version None)
Quarter: 2012Q3

REPORT INFORMATION
  Report Type: 
  Country: None (occurrence: None)
  Receive Date: 20120824
  Receipt Date: 20120824
  Transmission Date: 20120928
  Serious: No
  Sender: FDA-Public Use
  Company Number: None

PATIENT
  Age: 67 Year
  Sex: Female
  Weight: 92.9874 kg

DRUGS (1)
  1. ZETIA [Suspect]
     Dosage: QD
     Dates: start: 20080101, end: 20110101

REACTIONS (1)
  - PANCREATITIS [None]
